FAERS Safety Report 16728505 (Version 1)
Quarter: 2019Q3

REPORT INFORMATION
  Report Type: Report from Study
  Country: JP (occurrence: JP)
  Receive Date: 20190822
  Receipt Date: 20190822
  Transmission Date: 20191005
  Serious: Yes (Hospitalization)
  Sender: FDA-Public Use
  Company Number: JP-ACTELION-A-CH2019-194590

PATIENT
  Age: 1 Year
  Sex: Male
  Weight: 8.01 kg

DRUGS (21)
  1. OPSUMIT [Suspect]
     Active Substance: MACITENTAN
     Indication: PULMONARY ARTERIAL HYPERTENSION
     Dosage: 0.4 MG, OD
     Route: 048
     Dates: start: 20180529, end: 20180531
  2. OXYGEN. [Concomitant]
     Active Substance: OXYGEN
  3. NITRIC OXIDE. [Concomitant]
     Active Substance: NITRIC OXIDE
  4. THYRADIN [Concomitant]
     Active Substance: LEVOTHYROXINE
  5. FUROSEMIDE. [Concomitant]
     Active Substance: FUROSEMIDE
  6. CORETEC [Concomitant]
  7. EPOPROSTENOL SODIUM. [Suspect]
     Active Substance: EPOPROSTENOL SODIUM
     Indication: PULMONARY HYPERTENSION
     Dosage: UNK
     Route: 042
     Dates: start: 20180524, end: 20180528
  8. GLUCONSAN K [Concomitant]
     Active Substance: POTASSIUM GLUCONATE
  9. NOBELBAR [Concomitant]
     Active Substance: PHENOBARBITAL SODIUM
  10. DIPYRIDAMOLE. [Suspect]
     Active Substance: DIPYRIDAMOLE
     Indication: THROMBOSIS PROPHYLAXIS
     Dosage: 16 MG, BID
     Route: 048
     Dates: start: 20180525
  11. REVATIO [Suspect]
     Active Substance: SILDENAFIL CITRATE
     Indication: PULMONARY ARTERIAL HYPERTENSION
     Dosage: 2 MG, QID
     Route: 048
     Dates: start: 20180525
  12. SULBACILLIN [Concomitant]
     Active Substance: AMPICILLIN SODIUM\SULBACTAM SODIUM
  13. EPOPROSTENOL SODIUM. [Suspect]
     Active Substance: EPOPROSTENOL SODIUM
     Dosage: 2 NG/KG, PER MIN
     Route: 042
     Dates: end: 20180528
  14. ALDACTONE A [Concomitant]
     Active Substance: SPIRONOLACTONE
  15. LASIX [Concomitant]
     Active Substance: FUROSEMIDE
  16. OPSUMIT [Suspect]
     Active Substance: MACITENTAN
     Dosage: 0.8 MG, OD
     Route: 048
     Dates: start: 20180601, end: 20180602
  17. HANP [Suspect]
     Active Substance: CARPERITIDE
     Indication: RIGHT VENTRICULAR FAILURE
     Dosage: 0.15 ?G/KG, PER MIN
     Route: 042
     Dates: start: 20180510
  18. BIOFERMIN R [Concomitant]
     Active Substance: DIETARY SUPPLEMENT\PROBIOTICS
  19. DOBUTAMINE [Concomitant]
     Active Substance: DOBUTAMINE HYDROCHLORIDE
  20. VANCOMYCIN [Concomitant]
     Active Substance: VANCOMYCIN
  21. TAKEPRON [Concomitant]
     Active Substance: LANSOPRAZOLE

REACTIONS (3)
  - Blood pressure decreased [Recovering/Resolving]
  - Pulmonary haemorrhage [Recovering/Resolving]
  - Transfusion [Unknown]

NARRATIVE: CASE EVENT DATE: 20180531
